FAERS Safety Report 4655433-5 (Version None)
Quarter: 2005Q2

REPORT INFORMATION
  Report Type: 
  Country: None (occurrence: None)
  Receive Date: 20050505
  Receipt Date: 20050414
  Transmission Date: 20051028
  Serious: Yes (Death, Hospitalization)
  Sender: FDA-Public Use
  Company Number: USA050495672

PATIENT
  Age: 75 Year
  Sex: Male

DRUGS (1)
  1. GEMZAR [Suspect]
     Indication: LUNG CANCER METASTATIC
     Dosage: 800 MG/M2/1 WEEK

REACTIONS (5)
  - CIRCULATORY COLLAPSE [None]
  - HYPERTENSION [None]
  - PNEUMONIA [None]
  - SEPSIS [None]
  - WHITE BLOOD CELL COUNT INCREASED [None]
